FAERS Safety Report 4677486-0 (Version None)
Quarter: 2005Q2

REPORT INFORMATION
  Report Type: 
  Country: None (occurrence: None)
  Receive Date: 20050527
  Receipt Date: 20050126
  Transmission Date: 20051028
  Serious: Yes (Other)
  Sender: FDA-Public Use
  Company Number: PHEH2005US01328

PATIENT
  Age: 49 Year
  Sex: Female

DRUGS (7)
  1. ZOMETA [Suspect]
     Indication: METASTASES TO BONE
     Dosage: 4MG QMO
     Route: 042
     Dates: start: 20020601, end: 20041001
  2. ADRIAMYCIN PFS [Concomitant]
  3. CYTOXAN [Concomitant]
  4. TAXOTERE [Concomitant]
  5. XELODA [Concomitant]
  6. NAVELBINE [Concomitant]
  7. DEXAMETHASONE [Concomitant]

REACTIONS (1)
  - OSTEONECROSIS [None]
